FAERS Safety Report 12211148 (Version 2)
Quarter: 2016Q2

REPORT INFORMATION
  Report Type: Spontaneous
  Country: GB (occurrence: GB)
  Receive Date: 20160325
  Receipt Date: 20160411
  Transmission Date: 20160815
  Serious: Yes (Other)
  Sender: FDA-Public Use
  Company Number: GB-BAXTER-2016BAX013645

PATIENT
  Sex: Female

DRUGS (19)
  1. HERCEPTIN [Suspect]
     Active Substance: TRASTUZUMAB
     Dosage: 13TH CYCLE
     Route: 058
     Dates: start: 20151230
  2. HERCEPTIN [Suspect]
     Active Substance: TRASTUZUMAB
     Dosage: 6TH CYCLE
     Route: 058
     Dates: start: 20150729
  3. HERCEPTIN [Suspect]
     Active Substance: TRASTUZUMAB
     Dosage: 11TH CYCLE
     Route: 058
     Dates: start: 20151113
  4. HERCEPTIN [Suspect]
     Active Substance: TRASTUZUMAB
     Dosage: 8TH CYCLE
     Route: 058
     Dates: start: 20150909
  5. CYCLOPHOSPHAMIDE INJECTION 1G [Suspect]
     Active Substance: CYCLOPHOSPHAMIDE
     Indication: PRODUCT USED FOR UNKNOWN INDICATION
     Route: 065
  6. HERCEPTIN [Suspect]
     Active Substance: TRASTUZUMAB
     Dosage: 7TH CYCLE
     Route: 058
     Dates: start: 20150819
  7. EPIRUBICIN [Suspect]
     Active Substance: EPIRUBICIN
     Indication: PRODUCT USED FOR UNKNOWN INDICATION
     Route: 065
  8. HERCEPTIN [Suspect]
     Active Substance: TRASTUZUMAB
     Dosage: 3RD CYCLE
     Route: 058
     Dates: start: 20150527
  9. HERCEPTIN [Suspect]
     Active Substance: TRASTUZUMAB
     Dosage: 4TH CYCLE
     Route: 058
     Dates: start: 20150617
  10. HERCEPTIN [Suspect]
     Active Substance: TRASTUZUMAB
     Dosage: 5TH CYCLE
     Route: 058
     Dates: start: 20150708
  11. HERCEPTIN [Suspect]
     Active Substance: TRASTUZUMAB
     Dosage: 9TH CYCLE
     Route: 058
     Dates: start: 20151002
  12. HERCEPTIN [Suspect]
     Active Substance: TRASTUZUMAB
     Dosage: 12TH CYCLE
     Route: 058
     Dates: start: 20151204
  13. HERCEPTIN [Suspect]
     Active Substance: TRASTUZUMAB
     Dosage: 14TH CYCLE
     Route: 058
     Dates: start: 20160120
  14. HERCEPTIN [Suspect]
     Active Substance: TRASTUZUMAB
     Dosage: 15TH CYCLE
     Route: 058
     Dates: start: 20160210
  15. TAMOXIFEN [Suspect]
     Active Substance: TAMOXIFEN
     Indication: PRODUCT USED FOR UNKNOWN INDICATION
     Route: 065
  16. DOCETAXEL. [Suspect]
     Active Substance: DOCETAXEL
     Indication: PRODUCT USED FOR UNKNOWN INDICATION
     Route: 065
  17. HERCEPTIN [Suspect]
     Active Substance: TRASTUZUMAB
     Dosage: 2ND CYCLE
     Route: 058
     Dates: start: 20150507
  18. HERCEPTIN [Suspect]
     Active Substance: TRASTUZUMAB
     Dosage: 10TH CYCLE
     Route: 058
     Dates: start: 20151023
  19. HERCEPTIN [Suspect]
     Active Substance: TRASTUZUMAB
     Indication: PRODUCT USED FOR UNKNOWN INDICATION
     Dosage: 1ST CYCLE
     Route: 058
     Dates: start: 20150415

REACTIONS (21)
  - Vein disorder [Unknown]
  - Hot flush [Not Recovered/Not Resolved]
  - Sleep disorder [Recovered/Resolved]
  - Arthropathy [Recovered/Resolved]
  - Discomfort [Unknown]
  - Haemorrhage [Unknown]
  - Joint stiffness [Not Recovered/Not Resolved]
  - Insomnia [Not Recovered/Not Resolved]
  - Joint range of motion decreased [Unknown]
  - Arthralgia [Not Recovered/Not Resolved]
  - Fatigue [Not Recovered/Not Resolved]
  - Musculoskeletal pain [Not Recovered/Not Resolved]
  - Chills [Not Recovered/Not Resolved]
  - Tinnitus [Not Recovered/Not Resolved]
  - Pollakiuria [Unknown]
  - Skin hypopigmentation [Unknown]
  - Pruritus [Not Recovered/Not Resolved]
  - Blood pressure diastolic increased [Unknown]
  - Injection site reaction [Unknown]
  - Pain in extremity [Not Recovered/Not Resolved]
  - Hypokinesia [Unknown]
